FAERS Safety Report 7403314-6 (Version None)
Quarter: 2011Q2

REPORT INFORMATION
  Report Type: 
  Country: None (occurrence: None)
  Receive Date: 20110408
  Receipt Date: 20110315
  Transmission Date: 20111010
  Serious: No
  Sender: FDA-Public Use
  Company Number: US-B.I. PHARMACEUTICALS,INC./RIDGEFIELD-2011-BP-08299BP

PATIENT
  Sex: Female

DRUGS (9)
  1. PRAVACHOL [Concomitant]
     Indication: BLOOD CHOLESTEROL INCREASED
  2. FOSAMAX [Concomitant]
     Indication: PROPHYLAXIS
  3. VIT D [Concomitant]
     Indication: PROPHYLAXIS
  4. OXYBUTYNIN CHLORIDE [Concomitant]
     Indication: HYPERTENSION
  5. LEVOXYL [Concomitant]
     Indication: HYPOTHYROIDISM
  6. PRADAXA [Suspect]
     Indication: ATRIAL FIBRILLATION
     Dosage: 300 MG
     Route: 048
     Dates: start: 20101101
  7. EFFIENT [Concomitant]
     Dates: start: 20101129
  8. ASPIRIN [Concomitant]
     Indication: PROPHYLAXIS
  9. VIT C [Concomitant]
     Indication: PROPHYLAXIS

REACTIONS (2)
  - EPISTAXIS [None]
  - RHINORRHOEA [None]
